FAERS Safety Report 6666942-1 (Version None)
Quarter: 2010Q2

REPORT INFORMATION
  Report Type: 
  Country: None (occurrence: None)
  Receive Date: 20100405
  Receipt Date: 20100323
  Transmission Date: 20101027
  Serious: Yes (Other)
  Sender: FDA-Public Use
  Company Number: PHHY2010FR08863

PATIENT
  Sex: Male

DRUGS (1)
  1. TAREG [Suspect]
     Indication: HYPERTENSION
     Dosage: 160 MG, QD
     Route: 048
     Dates: start: 20070101

REACTIONS (8)
  - ADENOCARCINOMA PANCREAS [None]
  - ASTHENIA [None]
  - CHOLESTASIS [None]
  - DECREASED APPETITE [None]
  - FAECES DISCOLOURED [None]
  - LIVER DISORDER [None]
  - NAUSEA [None]
  - PRURITUS [None]
